FAERS Safety Report 24650135 (Version 2)
Quarter: 2025Q3

REPORT INFORMATION
  Report Type: Spontaneous
  Country: US (occurrence: US)
  Receive Date: 20241122
  Receipt Date: 20250809
  Transmission Date: 20251021
  Serious: Yes (Other)
  Sender: ALEXION PHARMACEUTICALS
  Company Number: US-AstraZeneca-CH-00748630A

PATIENT

DRUGS (1)
  1. NEXIUM [Suspect]
     Active Substance: ESOMEPRAZOLE MAGNESIUM
     Dates: start: 2005, end: 202404

REACTIONS (3)
  - Chronic kidney disease [Unknown]
  - Gastrooesophageal reflux disease [Unknown]
  - Anaemia [Unknown]
